FAERS Safety Report 20642187 (Version 2)
Quarter: 2024Q3

REPORT INFORMATION
  Report Type: Report from Study
  Country: GB (occurrence: GB)
  Receive Date: 20220328
  Receipt Date: 20240814
  Transmission Date: 20241016
  Serious: Yes (Other)
  Sender: REGENERON
  Company Number: GB-SA-SAC20220322002064

PATIENT
  Sex: Male

DRUGS (1)
  1. PRALUENT [Suspect]
     Active Substance: ALIROCUMAB
     Indication: Hypercholesterolaemia
     Dosage: 75 MG, QOW
     Route: 058

REACTIONS (3)
  - Cerebrovascular accident [Unknown]
  - Deafness [Unknown]
  - Visual impairment [Unknown]
